FAERS Safety Report 20819348 (Version 1)
Quarter: 2022Q2

REPORT INFORMATION
  Report Type: Other
  Country: CL (occurrence: None)
  Receive Date: 20220512
  Receipt Date: 20220512
  Transmission Date: 20220721
  Serious: Yes (Hospitalization)
  Sender: FDA-Public Use
  Company Number: CL-ROCHE-3091045

PATIENT
  Age: 70 Year
  Sex: Female

DRUGS (1)
  1. SATRALIZUMAB [Suspect]
     Active Substance: SATRALIZUMAB
     Indication: Neuromyelitis optica spectrum disorder
     Dosage: DOSE: 120MG/ML
     Route: 058
     Dates: start: 20211105

REACTIONS (1)
  - Tracheobronchitis [Not Recovered/Not Resolved]

NARRATIVE: CASE EVENT DATE: 20220401
